FAERS Safety Report 26009836 (Version 1)
Quarter: 2025Q4

REPORT INFORMATION
  Report Type: Spontaneous
  Country: US (occurrence: US)
  Receive Date: 20251107
  Receipt Date: 20251107
  Transmission Date: 20260118
  Serious: Yes (Life-Threatening, Hospitalization, Other)
  Sender: DR REDDYS
  Company Number: US-DRL-USA-USA/2025/10/016510

PATIENT
  Age: 34 Year
  Sex: Female

DRUGS (12)
  1. TIZANIDINE [Suspect]
     Active Substance: TIZANIDINE
     Indication: Product used for unknown indication
     Dosage: 80MG PER DAY
  2. TIZANIDINE [Suspect]
     Active Substance: TIZANIDINE
     Dosage: 12MG PO
     Route: 048
  3. TIZANIDINE [Suspect]
     Active Substance: TIZANIDINE
     Dosage: 32 MG TIZANIDINE PO
     Route: 048
  4. PROPOFOL [Suspect]
     Active Substance: PROPOFOL
     Indication: Withdrawal syndrome
     Dosage: 100 MCG/KG/ HR PROPOFOL
     Route: 040
  5. CLONIDINE [Suspect]
     Active Substance: CLONIDINE
     Indication: Withdrawal syndrome
     Dosage: CLONIDINE PATCH
  6. DIAZEPAM [Suspect]
     Active Substance: DIAZEPAM
     Indication: Withdrawal syndrome
     Dosage: 10MG IV DIAZEPAM
     Route: 042
  7. DEXMEDETOMIDINE [Suspect]
     Active Substance: DEXMEDETOMIDINE
     Indication: Withdrawal syndrome
     Dosage: DEXMEDETOMIDINE INFUSION WITH A RATE UP TO 1.2 MCG/KG/HR
  8. DEXMEDETOMIDINE [Suspect]
     Active Substance: DEXMEDETOMIDINE
     Dosage: 1.4MCG/KG/ HR DEXMEDETOMIDINE
  9. LORAZEPAM [Suspect]
     Active Substance: LORAZEPAM
     Indication: Withdrawal syndrome
     Dosage: 7 MG LORAZEPAM OVER 24 HOURS
  10. PHENOBARBITAL [Suspect]
     Active Substance: PHENOBARBITAL
     Indication: Withdrawal syndrome
     Dosage: 260 MG PHENOBARBITAL BOLUS
     Route: 040
  11. CLONIDINE [Suspect]
     Active Substance: CLONIDINE
     Indication: Withdrawal syndrome
     Dosage: 0.6MG EVERY 6 HOURS ?PRN.
  12. MIDAZOLAM [Suspect]
     Active Substance: MIDAZOLAM
     Indication: Withdrawal syndrome
     Route: 040

REACTIONS (5)
  - Withdrawal syndrome [Unknown]
  - Intentional product misuse [Unknown]
  - Exposure during pregnancy [Unknown]
  - Premature delivery [Unknown]
  - Product use in unapproved indication [Unknown]
